FAERS Safety Report 8016895-9 (Version None)
Quarter: 2012Q1

REPORT INFORMATION
  Report Type: 
  Country: None (occurrence: None)
  Receive Date: 20120102
  Receipt Date: 20111221
  Transmission Date: 20120608
  Serious: Yes (Other)
  Sender: FDA-Public Use
  Company Number: PHHY2011IT112686

PATIENT
  Sex: Female

DRUGS (2)
  1. ZOMETA [Suspect]
     Indication: BREAST CANCER
  2. AREDIA [Suspect]
     Indication: BREAST CANCER

REACTIONS (6)
  - DEVICE MATERIAL ISSUE [None]
  - FISTULA [None]
  - OSTEONECROSIS OF JAW [None]
  - INJURY [None]
  - PAIN IN JAW [None]
  - TOOTH LOSS [None]
